FAERS Safety Report 4280066-2 (Version None)
Quarter: 2004Q1

REPORT INFORMATION
  Report Type: 
  Country: None (occurrence: None)
  Receive Date: 20040126
  Receipt Date: 20040113
  Transmission Date: 20041129
  Serious: Yes (Hospitalization)
  Sender: FDA-Public Use
  Company Number: FR-JNJFOC-20031006468

PATIENT
  Age: 25 Year
  Sex: Male

DRUGS (9)
  1. PEVARYL (ECONAZOLE NITRATE) SPRAY-SOLUTION [Suspect]
     Indication: INTERTRIGO
     Dosage: 2 IN 1 DAY, TOPICAL
     Route: 061
     Dates: start: 20030918, end: 20030921
  2. HYDROCORTISONE BUTYRATE [Suspect]
     Dosage: TOPICAL
     Route: 062
     Dates: start: 20030909, end: 20030915
  3. HEXOMEDINE (HEXAMIDINE ISETIONATE) [Suspect]
     Dosage: TOPICAL
     Route: 061
     Dates: start: 20030909, end: 20030909
  4. LAMISIL [Suspect]
     Dosage: TOPICAL
     Route: 061
     Dates: start: 20030918, end: 20030929
  5. FLUICIDINE (FUSIDATE SODIUM) [Concomitant]
  6. POLARAMINE [Concomitant]
  7. DIPROSONE [Concomitant]
  8. ATARAX [Concomitant]
  9. PREDNISOLONE [Concomitant]

REACTIONS (7)
  - CULTURE POSITIVE [None]
  - DERMATITIS ATOPIC [None]
  - DERMATITIS CONTACT [None]
  - ECZEMA [None]
  - ERYTHEMA MULTIFORME [None]
  - SKIN TEST POSITIVE [None]
  - STAPHYLOCOCCAL INFECTION [None]
